FAERS Safety Report 6337332-6 (Version None)
Quarter: 2009Q3

REPORT INFORMATION
  Report Type: 
  Country: None (occurrence: None)
  Receive Date: 20090828
  Receipt Date: 20090828
  Transmission Date: 20100115
  Serious: Yes (Hospitalization, Other)
  Sender: FDA-Public Use
  Company Number: None

PATIENT
  Age: 51 Year
  Sex: Male

DRUGS (3)
  1. HALOPERIDOL [Suspect]
     Indication: AGITATION
     Dosage: 5 MG ONCE PO; 5 MG ONCE IM
     Route: 048
     Dates: start: 20090717, end: 20090718
  2. CLOZARIL [Concomitant]
  3. DEPAKOTE [Concomitant]

REACTIONS (4)
  - BLOOD CREATINE PHOSPHOKINASE INCREASED [None]
  - DOCUMENTED HYPERSENSITIVITY TO ADMINISTERED DRUG [None]
  - MENTAL STATUS CHANGES [None]
  - PYREXIA [None]
